FAERS Safety Report 6510577-8 (Version None)
Quarter: 2009Q4

REPORT INFORMATION
  Report Type: 
  Country: None (occurrence: None)
  Receive Date: 20091222
  Receipt Date: 20091030
  Transmission Date: 20100525
  Serious: No
  Sender: FDA-Public Use
  Company Number: US-ASTRAZENECA-2009SE23783

PATIENT
  Age: 70 Year
  Sex: Female
  Weight: 59 kg

DRUGS (2)
  1. CRESTOR [Suspect]
     Dosage: 10 MG FOR THREE MONTHS
     Route: 048
     Dates: start: 20090801
  2. LISINOPRIL [Concomitant]

REACTIONS (3)
  - DERMATITIS [None]
  - RASH [None]
  - ROSACEA [None]
